FAERS Safety Report 7804876-7 (Version None)
Quarter: 2011Q4

REPORT INFORMATION
  Report Type: 
  Country: None (occurrence: None)
  Receive Date: 20111010
  Receipt Date: 20111003
  Transmission Date: 20120403
  Serious: Yes (Hospitalization)
  Sender: FDA-Public Use
  Company Number: FR-MERCK-1110FRA00016

PATIENT
  Age: 60 Year
  Sex: Female

DRUGS (2)
  1. ASPIRIN AND CAFFEINE AND PROPOXYPHENE HYDROCHLORIDE [Concomitant]
     Route: 065
  2. NOROXIN [Suspect]
     Route: 048
     Dates: start: 20110101, end: 20110101

REACTIONS (7)
  - DRUG DISPENSING ERROR [None]
  - WEIGHT DECREASED [None]
  - TENDON PAIN [None]
  - SKIN DISORDER [None]
  - DEPRESSION [None]
  - OVERDOSE [None]
  - PROTEINURIA [None]
